FAERS Safety Report 23074536 (Version 4)
Quarter: 2025Q4

REPORT INFORMATION
  Report Type: Spontaneous
  Country: US (occurrence: US)
  Receive Date: 20231017
  Receipt Date: 20251208
  Transmission Date: 20260117
  Serious: Yes (Other)
  Sender: MYLAN
  Company Number: US-MYLANLABS-2023M1108837

PATIENT
  Sex: Female

DRUGS (4)
  1. GABAPENTIN [Suspect]
     Active Substance: GABAPENTIN
     Indication: Epilepsy
     Dosage: 800 MILLIGRAM, TID (3 X A DAY)
  2. GABAPENTIN [Suspect]
     Active Substance: GABAPENTIN
     Indication: Disability
     Dosage: 1600 MILLIGRAM, 6XD (6 X A DAY)
  3. VALIUM [Concomitant]
     Active Substance: DIAZEPAM
     Indication: Epilepsy
     Dosage: 10 MILLIGRAM, QD (ONCE A DAY)
  4. VALIUM [Concomitant]
     Active Substance: DIAZEPAM
     Indication: Disability

REACTIONS (4)
  - Seizure [Unknown]
  - Vomiting [Unknown]
  - Off label use [Unknown]
  - Overdose [Unknown]
